FAERS Safety Report 12378087 (Version 1)
Quarter: 2016Q2

REPORT INFORMATION
  Report Type: Report from Study
  Country: US (occurrence: US)
  Receive Date: 20160517
  Receipt Date: 20160517
  Transmission Date: 20160815
  Serious: No
  Sender: FDA-Public Use
  Company Number: US-MALLINCKRODT-T201600618

PATIENT
  Age: 49 Year
  Sex: Female

DRUGS (2)
  1. REPOSITORY CORTICOTROPIN INJECTION [Suspect]
     Active Substance: CORTICOTROPIN
     Indication: RHEUMATOID ARTHRITIS
     Dosage: 80 UNITS TWICE WKLY (VIA SUBCUTANEOUS AND/OR INTRAMUSCULAR)
     Route: 058
     Dates: start: 20160219
  2. REPOSITORY CORTICOTROPIN INJECTION [Suspect]
     Active Substance: CORTICOTROPIN
     Dosage: 80 UNITS TWICE WEEKLY (VIA SUBCUTANEOUS AND/OR INTRAMUSCULAR)
     Route: 058
     Dates: end: 20160324

REACTIONS (8)
  - Malaise [Not Recovered/Not Resolved]
  - Abdominal pain upper [Not Recovered/Not Resolved]
  - Myalgia [Not Recovered/Not Resolved]
  - Nausea [Not Recovered/Not Resolved]
  - Arthritis [Not Recovered/Not Resolved]
  - Hypertension [Not Recovered/Not Resolved]
  - Pain in extremity [Not Recovered/Not Resolved]
  - Influenza [Not Recovered/Not Resolved]

NARRATIVE: CASE EVENT DATE: 201602
